FAERS Safety Report 9826232 (Version 2)
Quarter: 2014Q1

REPORT INFORMATION
  Report Type: Spontaneous
  Country: US (occurrence: US)
  Receive Date: 20140117
  Receipt Date: 20140123
  Transmission Date: 20141002
  Serious: No
  Sender: FDA-Public Use
  Company Number: US-009507513-1401USA003775

PATIENT
  Age: 20 Year
  Sex: Female
  Weight: 139.68 kg

DRUGS (1)
  1. NEXPLANON [Suspect]
     Dosage: UNK
     Route: 059
     Dates: start: 20130930

REACTIONS (3)
  - Device breakage [Unknown]
  - Device dislocation [Unknown]
  - Menorrhagia [Unknown]
